FAERS Safety Report 13926019 (Version 1)
Quarter: 2017Q3

REPORT INFORMATION
  Report Type: Spontaneous
  Country: IN (occurrence: IN)
  Receive Date: 20170831
  Receipt Date: 20170831
  Transmission Date: 20171127
  Serious: Yes (Hospitalization)
  Sender: FDA-Public Use
  Company Number: IN-FRESENIUS KABI-FK201707269

PATIENT
  Age: 26 Year
  Sex: Female

DRUGS (4)
  1. LEPROLIDE [Concomitant]
     Indication: PROPHYLAXIS
     Route: 065
  2. CYCLOPHOSPHAMIDE (MANUFACTURER UNKNOWN) [Suspect]
     Active Substance: CYCLOPHOSPHAMIDE
     Indication: LUPUS NEPHRITIS
     Route: 065
  3. MESNA. [Concomitant]
     Active Substance: MESNA
     Indication: HAEMORRHAGE PROPHYLAXIS
     Route: 065
  4. METHYLPREDNISOLONE (MANUFACTURER UNKNOWN) [Suspect]
     Active Substance: METHYLPREDNISOLONE
     Indication: LUPUS NEPHRITIS
     Route: 042

REACTIONS (1)
  - Pulmonary tuberculosis [Unknown]
